FAERS Safety Report 12369737 (Version 2)
Quarter: 2016Q2

REPORT INFORMATION
  Report Type: Report from Study
  Country: HR (occurrence: HR)
  Receive Date: 20160516
  Receipt Date: 20160519
  Transmission Date: 20160815
  Serious: Yes (Hospitalization)
  Sender: FDA-Public Use
  Company Number: HR-ASTRAZENECA-2016SE51604

PATIENT
  Age: 53 Year
  Sex: Female

DRUGS (4)
  1. BRETARIS [Suspect]
     Active Substance: ACLIDINIUM BROMIDE
     Indication: CHRONIC OBSTRUCTIVE PULMONARY DISEASE
     Route: 055
     Dates: start: 201511, end: 201601
  2. BILASTINE [Concomitant]
     Active Substance: BILASTINE
     Indication: HYPERSENSITIVITY
  3. MEDROL [Concomitant]
     Active Substance: METHYLPREDNISOLONE
     Dates: start: 201601
  4. BUDELIN NOVOLIZER [Concomitant]
     Indication: CHRONIC OBSTRUCTIVE PULMONARY DISEASE
     Dates: start: 201511

REACTIONS (1)
  - Dyspnoea [Recovering/Resolving]
